FAERS Safety Report 6862319-4 (Version None)
Quarter: 2010Q3

REPORT INFORMATION
  Report Type: 
  Country: None (occurrence: None)
  Receive Date: 20100721
  Receipt Date: 20100709
  Transmission Date: 20110219
  Serious: Yes (Other)
  Sender: FDA-Public Use
  Company Number: PHHY2010JP30742

PATIENT
  Age: 89 Year
  Sex: Female

DRUGS (4)
  1. DIOVAN [Suspect]
     Indication: HYPERTENSION
     Dosage: 80 MG, DAILY
     Route: 048
     Dates: start: 20090601
  2. UBRETID [Suspect]
     Dosage: 2 DF
     Route: 048
     Dates: start: 20080401, end: 20100506
  3. EBRANTIL [Suspect]
     Dosage: 2 DF
     Route: 048
     Dates: start: 20080201
  4. MUCODYNE [Suspect]
     Dosage: UNK
     Route: 048
     Dates: start: 20080401

REACTIONS (1)
  - ATRIOVENTRICULAR BLOCK FIRST DEGREE [None]
